FAERS Safety Report 9580207 (Version 1)
Quarter: 2013Q3

REPORT INFORMATION
  Report Type: Spontaneous
  Country: US (occurrence: None)
  Receive Date: 20130916
  Receipt Date: 20130916
  Transmission Date: 20140515
  Serious: Yes (Other)
  Sender: FDA-Public Use
  Company Number: JPI-P-029855

PATIENT
  Age: 49 Year
  Sex: Female
  Weight: 92.99 kg

DRUGS (3)
  1. XYREM [Suspect]
     Indication: FIBROMYALGIA
     Route: 048
     Dates: start: 20041108
  2. ZALEPLON [Suspect]
     Indication: SLEEP DISORDER
     Route: 048
     Dates: start: 2012
  3. PHENELZINE [Concomitant]

REACTIONS (9)
  - Hypertension [None]
  - Diabetes mellitus [None]
  - Food craving [None]
  - Insomnia [None]
  - Incorrect dose administered [None]
  - Weight decreased [None]
  - Nausea [None]
  - Headache [None]
  - Pain [None]
